FAERS Safety Report 6433232-1 (Version None)
Quarter: 2009Q4

REPORT INFORMATION
  Report Type: 
  Country: None (occurrence: None)
  Receive Date: 20091109
  Receipt Date: 20091028
  Transmission Date: 20100525
  Serious: Yes (Other)
  Sender: FDA-Public Use
  Company Number: JP-PFIZER INC-2009269943

PATIENT
  Age: 24 Year
  Sex: Female
  Weight: 44 kg

DRUGS (4)
  1. ZOLOFT [Suspect]
     Dosage: 50 MG, 1X/DAY
     Route: 048
     Dates: start: 20090825, end: 20090911
  2. ZOLOFT [Suspect]
     Dosage: 25 MG, 1X/DAY
     Route: 048
     Dates: start: 20090725, end: 20090824
  3. DEPAKENE [Concomitant]
     Dosage: UNK
     Route: 048
  4. WYPAX [Concomitant]
     Route: 048
     Dates: start: 20090701

REACTIONS (2)
  - CONVULSION [None]
  - LOSS OF CONSCIOUSNESS [None]
